FAERS Safety Report 5063994-X (Version None)
Quarter: 2006Q3

REPORT INFORMATION
  Report Type: 
  Country: None (occurrence: None)
  Receive Date: 20060703
  Receipt Date: 20050913
  Transmission Date: 20061208
  Serious: Yes (Life-Threatening, Hospitalization)
  Sender: FDA-Public Use
  Company Number: 2005S1009046

PATIENT
  Age: 36 Year
  Sex: Male
  Weight: 83.0083 kg

DRUGS (10)
  1. CLOZAPINE [Suspect]
     Indication: AGGRESSION
     Dosage: SEE IMAGE
     Route: 048
     Dates: start: 20040201, end: 20050901
  2. CLOZAPINE [Suspect]
     Indication: AUTISM
     Dosage: SEE IMAGE
     Route: 048
     Dates: start: 20040201, end: 20050901
  3. CLOZAPINE [Suspect]
     Indication: INTERMITTENT EXPLOSIVE DISORDER
     Dosage: SEE IMAGE
     Route: 048
     Dates: start: 20040201, end: 20050901
  4. CLOZAPINE [Suspect]
     Indication: AGGRESSION
     Dosage: SEE IMAGE
     Route: 048
     Dates: start: 20040201
  5. CLOZAPINE [Suspect]
     Indication: AUTISM
     Dosage: SEE IMAGE
     Route: 048
     Dates: start: 20040201
  6. CLOZAPINE [Suspect]
     Indication: INTERMITTENT EXPLOSIVE DISORDER
     Dosage: SEE IMAGE
     Route: 048
     Dates: start: 20040201
  7. DEPAKOTE ER [Suspect]
     Indication: AGGRESSION
     Dosage: 1500 MG;QD;PO
     Route: 048
     Dates: start: 20041208
  8. DEPAKOTE ER [Suspect]
     Indication: AUTISM
     Dosage: 1500 MG;QD;PO
     Route: 048
     Dates: start: 20041208
  9. DEPAKOTE ER [Suspect]
     Indication: INTERMITTENT EXPLOSIVE DISORDER
     Dosage: 1500 MG;QD;PO
     Route: 048
     Dates: start: 20041208
  10. DOCUSATE SODIUM [Concomitant]

REACTIONS (1)
  - GRANULOCYTOPENIA [None]
